FAERS Safety Report 5419464-X (Version None)
Quarter: 2007Q3

REPORT INFORMATION
  Report Type: 
  Country: None (occurrence: None)
  Receive Date: 20070820
  Receipt Date: 20070810
  Transmission Date: 20080115
  Serious: Yes (Hospitalization)
  Sender: FDA-Public Use
  Company Number: B0483699A

PATIENT
  Age: 85 Year
  Sex: Female
  Weight: 57 kg

DRUGS (11)
  1. AUGMENTIN '125' [Suspect]
     Indication: DRUG USE FOR UNKNOWN INDICATION
     Dosage: 625MG THREE TIMES PER DAY
     Route: 048
     Dates: start: 20070427, end: 20070430
  2. BACTRIM [Suspect]
     Indication: DRUG USE FOR UNKNOWN INDICATION
     Dosage: 800MG TWICE PER DAY
     Route: 048
     Dates: start: 20070430, end: 20070504
  3. NOROXIN [Suspect]
     Indication: DRUG USE FOR UNKNOWN INDICATION
     Dosage: 400MG TWICE PER DAY
     Route: 048
     Dates: start: 20070426, end: 20070427
  4. MAXIPIME [Suspect]
     Indication: DRUG USE FOR UNKNOWN INDICATION
     Dosage: 1000MG TWICE PER DAY
     Route: 048
     Dates: start: 20070504, end: 20070510
  5. KEPPRA [Concomitant]
     Indication: EPILEPSY
     Dosage: 500MG TWICE PER DAY
     Route: 048
     Dates: start: 20070427
  6. NEXIUM [Concomitant]
     Indication: DUODENAL ULCER
     Dosage: 40MG PER DAY
     Route: 048
     Dates: start: 20070322
  7. DAFALGAN [Concomitant]
     Indication: PAIN
     Dosage: 1G THREE TIMES PER DAY
     Route: 048
     Dates: start: 20070526
  8. ALDACTONE [Concomitant]
     Dosage: 12.5MG PER DAY
     Route: 048
     Dates: start: 20070419
  9. MOVICOL [Concomitant]
  10. FLAGYL 250 METRONIDAZOLE [Concomitant]
     Dosage: 500MG THREE TIMES PER DAY
     Dates: start: 20070504, end: 20070510
  11. DEPAKENE [Concomitant]
     Dosage: 500MG THREE TIMES PER DAY
     Route: 048
     Dates: start: 20040101, end: 20070424

REACTIONS (9)
  - CREATININE RENAL CLEARANCE DECREASED [None]
  - GAMMA-GLUTAMYLTRANSFERASE INCREASED [None]
  - HENOCH-SCHONLEIN PURPURA [None]
  - INSOMNIA [None]
  - PALPABLE PURPURA [None]
  - PETECHIAE [None]
  - PRURITUS [None]
  - RASH [None]
  - WHITE BLOOD CELL COUNT INCREASED [None]
